FAERS Safety Report 7519627-3 (Version None)
Quarter: 2011Q2

REPORT INFORMATION
  Report Type: 
  Country: None (occurrence: None)
  Receive Date: 20110602
  Receipt Date: 20110525
  Transmission Date: 20111010
  Serious: Yes (Death)
  Sender: FDA-Public Use
  Company Number: A0929137A

PATIENT
  Age: 78 Year
  Sex: Female

DRUGS (6)
  1. FLONASE [Suspect]
     Route: 045
  2. SINGULAIR [Concomitant]
  3. ARICEPT [Concomitant]
  4. ADVAIR DISKUS 100/50 [Suspect]
     Route: 055
  5. VENTOLIN [Suspect]
     Route: 055
  6. PROTONIX [Concomitant]

REACTIONS (1)
  - DEATH [None]
